FAERS Safety Report 14882901 (Version 2)
Quarter: 2018Q2

REPORT INFORMATION
  Report Type: Spontaneous
  Country: SE (occurrence: SE)
  Receive Date: 20180511
  Receipt Date: 20180618
  Transmission Date: 20180711
  Serious: Yes (Death)
  Sender: FDA-Public Use
  Company Number: SE-LPDUSPRD-20180781

PATIENT
  Age: 96 Year
  Sex: Male

DRUGS (1)
  1. FERINJECT [Suspect]
     Active Substance: FERRIC CARBOXYMALTOSE
     Dosage: 2 PACKETS OF 1X10ML
     Route: 041
     Dates: start: 201804

REACTIONS (2)
  - Product deposit [Recovered/Resolved]
  - Death [Fatal]

NARRATIVE: CASE EVENT DATE: 201804
